FAERS Safety Report 7671902-8 (Version None)
Quarter: 2011Q3

REPORT INFORMATION
  Report Type: 
  Country: None (occurrence: None)
  Receive Date: 20110809
  Receipt Date: 20110722
  Transmission Date: 20111222
  Serious: Yes (Death, Hospitalization)
  Sender: FDA-Public Use
  Company Number: US-GLAXOSMITHKLINE-A0873807A

PATIENT
  Age: 71 Year
  Sex: Male

DRUGS (6)
  1. RENAGEL [Concomitant]
  2. TOPROL-XL [Concomitant]
  3. AVANDIA [Suspect]
     Indication: DIABETES MELLITUS
     Dosage: 4MG PER DAY
     Route: 048
     Dates: start: 19990501, end: 20060501
  4. HYDRALAZINE HCL [Concomitant]
  5. NORVASC [Concomitant]
  6. NORVASC [Concomitant]

REACTIONS (4)
  - CARDIAC ARREST [None]
  - CARDIAC FAILURE CONGESTIVE [None]
  - ATRIAL FIBRILLATION [None]
  - ATRIAL FLUTTER [None]
